FAERS Safety Report 9087323 (Version 1)
Quarter: 2013Q1

REPORT INFORMATION
  Report Type: Spontaneous
  Country: DE (occurrence: DE)
  Receive Date: 20130131
  Receipt Date: 20130131
  Transmission Date: 20140127
  Serious: Yes (Other)
  Sender: FDA-Public Use
  Company Number: DE-PFIZER INC-2013036718

PATIENT
  Sex: Female

DRUGS (3)
  1. LYRICA [Suspect]
     Indication: NEURALGIA
     Dosage: 25 MG IN THE MORNING, 75 MG IN THE EVENING
  2. LYRICA [Suspect]
     Dosage: 50 MG, UNK
     Dates: start: 201301
  3. LYRICA [Suspect]
     Dosage: 25 MG, UNK
     Dates: start: 201301

REACTIONS (14)
  - Cardiac failure [Unknown]
  - Renal failure [Unknown]
  - Chest discomfort [Unknown]
  - Abnormal behaviour [Unknown]
  - Memory impairment [Unknown]
  - Respiratory disorder [Unknown]
  - Urinary incontinence [Unknown]
  - Rhinorrhoea [Unknown]
  - Balance disorder [Unknown]
  - Liver disorder [Unknown]
  - Malaise [Unknown]
  - Disturbance in attention [Unknown]
  - Dizziness [Recovering/Resolving]
  - Visual impairment [Unknown]
